FAERS Safety Report 9555666 (Version 2)
Quarter: 2013Q3

REPORT INFORMATION
  Report Type: Report from Study
  Country: US (occurrence: US)
  Receive Date: 20130926
  Receipt Date: 20130926
  Transmission Date: 20140515
  Serious: No
  Sender: FDA-Public Use
  Company Number: PHEH2013US016118

PATIENT
  Age: 61 Year
  Sex: Female

DRUGS (4)
  1. TASIGNA [Suspect]
     Indication: CHRONIC MYELOID LEUKAEMIA
     Dosage: 300 MG, BID
     Route: 048
     Dates: start: 20130202
  2. LEVOTHYROXINE [Concomitant]
     Dosage: 88 MG, DAILY
  3. LORAZEPAM [Concomitant]
     Dosage: 0.5 MG, DAILY
  4. PAROXETINE [Concomitant]
     Dosage: 10 MG, DAILY

REACTIONS (2)
  - Rash [Recovering/Resolving]
  - Pruritus [Recovering/Resolving]
